FAERS Safety Report 18919592 (Version 1)
Quarter: 2021Q1

REPORT INFORMATION
  Report Type: Spontaneous
  Country: FR (occurrence: FR)
  Receive Date: 20210221
  Receipt Date: 20210221
  Transmission Date: 20210420
  Serious: Yes (Other)
  Sender: FDA-Public Use
  Company Number: NVSC2021FR035007

PATIENT
  Age: 66 Year
  Sex: Male

DRUGS (2)
  1. IOPIDINE [Suspect]
     Active Substance: APRACLONIDINE HYDROCHLORIDE
     Indication: INTRAOCULAR PRESSURE INCREASED
     Dosage: 4 ADMINISTRATIONS (EVERY 5 MIN DURING 20 MIN )
     Route: 065
  2. LUCENTIS [Suspect]
     Active Substance: RANIBIZUMAB
     Indication: DIABETIC RETINAL OEDEMA
     Dosage: UNK (WHEN NEEDED)
     Route: 031
     Dates: start: 2018

REACTIONS (3)
  - Amaurosis fugax [Recovered/Resolved]
  - Product use in unapproved indication [Unknown]
  - Intraocular pressure increased [Recovered/Resolved]

NARRATIVE: CASE EVENT DATE: 202001
